FAERS Safety Report 8407299-5 (Version None)
Quarter: 2012Q2

REPORT INFORMATION
  Report Type: 
  Country: None (occurrence: None)
  Receive Date: 20120604
  Receipt Date: 20120521
  Transmission Date: 20120825
  Serious: Yes (Other)
  Sender: FDA-Public Use
  Company Number: GR-ROCHE-1073029

PATIENT
  Sex: Female

DRUGS (1)
  1. XELODA [Suspect]
     Indication: BREAST CANCER METASTATIC
     Dosage: ON DAYS 1 THROUGH 14
     Route: 048

REACTIONS (8)
  - NEUTROPENIA [None]
  - DIARRHOEA [None]
  - HYPERSENSITIVITY [None]
  - PALMAR-PLANTAR ERYTHRODYSAESTHESIA SYNDROME [None]
  - NEUROTOXICITY [None]
  - ANAEMIA [None]
  - FATIGUE [None]
  - VOMITING [None]
